FAERS Safety Report 7331091-6 (Version None)
Quarter: 2011Q1

REPORT INFORMATION
  Report Type: 
  Country: None (occurrence: None)
  Receive Date: 20110228
  Receipt Date: 20110228
  Transmission Date: 20110831
  Serious: No
  Sender: FDA-Public Use
  Company Number: None

PATIENT
  Age: 67 Year
  Sex: Male
  Weight: 77 kg

DRUGS (1)
  1. LEXISCAN [Suspect]
     Indication: CORONARY ARTERY DISEASE
     Dosage: 0.4MG ONCE IVP
     Route: 042
     Dates: start: 20110126

REACTIONS (5)
  - DYSPNOEA [None]
  - DIZZINESS [None]
  - VOMITING [None]
  - BLOOD PRESSURE DECREASED [None]
  - NAUSEA [None]
